FAERS Safety Report 11693155 (Version 1)
Quarter: 2015Q4

REPORT INFORMATION
  Report Type: Spontaneous
  Country: US (occurrence: None)
  Receive Date: 20151102
  Receipt Date: 20151102
  Transmission Date: 20160304
  Serious: Yes (Other)
  Sender: FDA-Public Use
  Company Number: None

PATIENT
  Age: 72 Year
  Sex: Female
  Weight: 61.24 kg

DRUGS (4)
  1. CALCIUM [Concomitant]
     Active Substance: CALCIUM
  2. DAILY VITAMIN [Concomitant]
     Active Substance: VITAMINS
  3. ALENDRONATE 70MG [Suspect]
     Active Substance: ALENDRONATE SODIUM
     Indication: OSTEOPOROSIS
     Dosage: 1 PILL
     Route: 048
  4. BIOTIN [Concomitant]
     Active Substance: BIOTIN

REACTIONS (3)
  - Irritable bowel syndrome [None]
  - Loss of consciousness [None]
  - Infection [None]

NARRATIVE: CASE EVENT DATE: 20150714
